FAERS Safety Report 6367360-6 (Version None)
Quarter: 2009Q3

REPORT INFORMATION
  Report Type: 
  Country: None (occurrence: None)
  Receive Date: 20090921
  Receipt Date: 20090903
  Transmission Date: 20100115
  Serious: Yes (Hospitalization)
  Sender: FDA-Public Use
  Company Number: US-JNJFOC-20090904151

PATIENT
  Sex: Female
  Weight: 69.6 kg

DRUGS (6)
  1. INFLIXIMAB [Suspect]
     Indication: CROHN'S DISEASE
     Dosage: NO DRUG GIVEN
     Route: 042
     Dates: start: 20090701
  2. MERCAPTOPURINE [Concomitant]
  3. PREDNISONE [Concomitant]
  4. CELLCEPT [Concomitant]
  5. MULTI-VITAMINS [Concomitant]
  6. ASPIRIN [Concomitant]

REACTIONS (2)
  - CROHN'S DISEASE [None]
  - FISTULA [None]
